FAERS Safety Report 17431638 (Version 3)
Quarter: 2020Q3

REPORT INFORMATION
  Report Type: Report from Study
  Country: BR (occurrence: BR)
  Receive Date: 20200218
  Receipt Date: 20200709
  Transmission Date: 20201102
  Serious: Yes (Other)
  Sender: FDA-Public Use
  Company Number: PHHY2019BR176817

PATIENT
  Age: 51 Year
  Sex: Female
  Weight: 74 kg

DRUGS (11)
  1. KISQALI [Suspect]
     Active Substance: RIBOCICLIB
     Dosage: UNK
     Route: 065
     Dates: start: 201904, end: 20200421
  2. ENTRESTO [Suspect]
     Active Substance: SACUBITRIL\VALSARTAN
     Indication: CARDIAC FAILURE
     Dosage: 2 DF (24/26MG) (1 TABLET AT MORNING AND 1 TABLET AT NIGHT), UNK
     Route: 048
     Dates: start: 201905, end: 201911
  3. ENTRESTO [Suspect]
     Active Substance: SACUBITRIL\VALSARTAN
     Indication: CARDIAC DISORDER
     Dosage: 2 DF, QD (49/51 MG)
     Route: 048
     Dates: start: 201911
  4. FULVESTRANT. [Suspect]
     Active Substance: FULVESTRANT
     Indication: PRODUCT USED FOR UNKNOWN INDICATION
     Dosage: UNK, Q4W (EACH 28 DAYS)
     Route: 065
     Dates: start: 20190430
  5. EXEMESTANE. [Concomitant]
     Active Substance: EXEMESTANE
     Indication: PRODUCT USED FOR UNKNOWN INDICATION
     Dosage: 25 MG
     Route: 065
  6. FULVESTRANT. [Suspect]
     Active Substance: FULVESTRANT
     Dosage: UNK
     Route: 065
     Dates: start: 201904, end: 202004
  7. CARVEDILOL. [Concomitant]
     Active Substance: CARVEDILOL
     Indication: HYPERTENSION
     Dosage: 2 DF, QD
     Route: 048
     Dates: start: 201905
  8. KISQALI [Suspect]
     Active Substance: RIBOCICLIB
     Indication: BREAST CANCER
     Dosage: 3 DF (3 TABLETS A DAY AT MORNING FOR 21 DAYS, STOP 7 DAYS AND RESTART), UNK
     Route: 065
     Dates: start: 20190509, end: 201910
  9. KISQALI [Suspect]
     Active Substance: RIBOCICLIB
     Dosage: UNK
     Route: 065
  10. KISQALI [Suspect]
     Active Substance: RIBOCICLIB
     Dosage: 2 DF
     Route: 065
     Dates: start: 20191006
  11. AFINITOR [Concomitant]
     Active Substance: EVEROLIMUS
     Indication: PRODUCT USED FOR UNKNOWN INDICATION
     Dosage: 10 MG
     Route: 065
     Dates: start: 20200505

REACTIONS (41)
  - Decreased immune responsiveness [Recovered/Resolved]
  - Diarrhoea [Recovered/Resolved]
  - Swelling face [Unknown]
  - Drug ineffective [Unknown]
  - Blister [Unknown]
  - Burning sensation [Recovering/Resolving]
  - Gait disturbance [Not Recovered/Not Resolved]
  - Metastases to skin [Unknown]
  - Headache [Recovered/Resolved]
  - Lymphoedema [Unknown]
  - Nausea [Unknown]
  - Blister [Recovering/Resolving]
  - Peripheral swelling [Not Recovered/Not Resolved]
  - Peritonitis [Recovered/Resolved]
  - Skin cancer [Unknown]
  - Cardiotoxicity [Unknown]
  - Diarrhoea [Unknown]
  - Erythema [Recovered/Resolved]
  - Lung disorder [Unknown]
  - Bacteriuria [Recovered/Resolved]
  - Movement disorder [Not Recovered/Not Resolved]
  - Pain [Recovering/Resolving]
  - Cardiac failure [Not Recovered/Not Resolved]
  - Rash [Unknown]
  - Aphthous ulcer [Recovered/Resolved]
  - Arthralgia [Not Recovered/Not Resolved]
  - Inflammation [Recovered/Resolved]
  - Hypertrichosis [Unknown]
  - Pain in extremity [Unknown]
  - Erythema [Unknown]
  - Skin abrasion [Recovered/Resolved]
  - Tumour marker increased [Unknown]
  - Skin wound [Recovering/Resolving]
  - Swelling [Unknown]
  - Skin wrinkling [Unknown]
  - Heart rate increased [Unknown]
  - Breast cancer [Unknown]
  - Malignant neoplasm progression [Unknown]
  - Fatigue [Not Recovered/Not Resolved]
  - General physical health deterioration [Unknown]
  - Joint swelling [Recovering/Resolving]

NARRATIVE: CASE EVENT DATE: 201905
